FAERS Safety Report 4447071-4 (Version None)
Quarter: 2004Q3

REPORT INFORMATION
  Report Type: 
  Country: None (occurrence: None)
  Receive Date: 20040813
  Receipt Date: 20040504
  Transmission Date: 20050211
  Serious: No
  Sender: FDA-Public Use
  Company Number: S04-USA-03568-01

PATIENT
  Age: 82 Year
  Sex: Female

DRUGS (11)
  1. NAMENDA [Suspect]
     Indication: DEMENTIA ALZHEIMER'S TYPE
     Dosage: 5 MG QD PO
     Route: 048
     Dates: start: 20040425, end: 20040501
  2. NAMENDA [Suspect]
     Indication: DEMENTIA ALZHEIMER'S TYPE
     Dosage: 10 MG QD PO
     Route: 048
     Dates: start: 20040502
  3. EXELON [Concomitant]
  4. LASIX [Concomitant]
  5. LIPITOR [Concomitant]
  6. POTASSIUM [Concomitant]
  7. PREVACID [Concomitant]
  8. SYNTHROID [Concomitant]
  9. COUMADIN [Concomitant]
  10. LISINOPRIL [Concomitant]
  11. SEROQUEL [Concomitant]

REACTIONS (1)
  - DIARRHOEA [None]
